FAERS Safety Report 5515077-X (Version None)
Quarter: 2007Q4

REPORT INFORMATION
  Report Type: 
  Country: None (occurrence: None)
  Receive Date: 20071113
  Receipt Date: 20061218
  Transmission Date: 20080405
  Serious: No
  Sender: FDA-Public Use
  Company Number: A0631955A

PATIENT
  Age: 58 Year
  Sex: Female

DRUGS (3)
  1. COREG [Suspect]
     Indication: ATRIAL FIBRILLATION
     Dosage: 3.25MG TWICE PER DAY
     Route: 048
  2. WARFARIN SODIUM [Concomitant]
  3. ACTOS [Concomitant]

REACTIONS (1)
  - HEART RATE IRREGULAR [None]
